FAERS Safety Report 4662790-2 (Version None)
Quarter: 2005Q2

REPORT INFORMATION
  Report Type: 
  Country: None (occurrence: None)
  Receive Date: 20050512
  Receipt Date: 20050421
  Transmission Date: 20051028
  Serious: Yes (Death, Hospitalization)
  Sender: FDA-Public Use
  Company Number: FR_050406302

PATIENT
  Age: 66 Year
  Sex: Male
  Weight: 57 kg

DRUGS (5)
  1. GEMZAR [Suspect]
     Indication: ADENOCARCINOMA PANCREAS
     Dosage: 300 MG/M2 OTHER
     Route: 050
     Dates: start: 20040625, end: 20040903
  2. DUROGESIC (FENTANYL) [Concomitant]
  3. MORPHINE SULFATE [Concomitant]
  4. KETOPROFEN [Concomitant]
  5. ACETAMINOPHEN [Concomitant]

REACTIONS (18)
  - AGITATION [None]
  - ANAEMIA [None]
  - BONE LESION [None]
  - DRUG TOXICITY [None]
  - MALIGNANT NEOPLASM PROGRESSION [None]
  - METASTASES TO BONE [None]
  - METASTASES TO LARGE INTESTINE [None]
  - METASTATIC NEOPLASM [None]
  - NEUTROPENIA [None]
  - OVERDOSE [None]
  - PERITONEAL EFFUSION [None]
  - PULMONARY EMBOLISM [None]
  - PULMONARY OEDEMA [None]
  - RENAL FAILURE [None]
  - THROMBOCYTOPENIA [None]
  - UNEVALUABLE EVENT [None]
  - UPPER RESPIRATORY TRACT CONGESTION [None]
  - VENA CAVA THROMBOSIS [None]
